FAERS Safety Report 5069197-7 (Version None)
Quarter: 2006Q3

REPORT INFORMATION
  Report Type: 
  Country: None (occurrence: None)
  Receive Date: 20060803
  Receipt Date: 20060627
  Transmission Date: 20061208
  Serious: Yes (Hospitalization)
  Sender: FDA-Public Use
  Company Number: US-JNJFOC-20060605784

PATIENT
  Sex: Male
  Weight: 65 kg

DRUGS (8)
  1. REMICADE [Suspect]
     Indication: DRUG DEPENDENCE
     Route: 042
  2. REMICADE [Suspect]
     Route: 042
  3. METHOTREXATE [Concomitant]
  4. ACTIGALL [Concomitant]
  5. ATIVAN [Concomitant]
  6. NEURONTIN [Concomitant]
  7. AMITRIL [Concomitant]
  8. ZOFRAN [Concomitant]

REACTIONS (2)
  - DRUG TOXICITY [None]
  - EXPOSURE TO TOXIC AGENT [None]
